FAERS Safety Report 14542252 (Version 1)
Quarter: 2018Q1

REPORT INFORMATION
  Report Type: Spontaneous
  Country: US (occurrence: US)
  Receive Date: 20180216
  Receipt Date: 20180216
  Transmission Date: 20180509
  Serious: Yes (Life-Threatening)
  Sender: FDA-Public Use
  Company Number: None

PATIENT
  Age: 60 Year
  Sex: Female
  Weight: 58.7 kg

DRUGS (10)
  1. AMLODIPINE [Concomitant]
     Active Substance: AMLODIPINE BESYLATE
  2. COMPAZINE [Concomitant]
     Active Substance: PROCHLORPERAZINE MALEATE
  3. ACYCLOVIR. [Concomitant]
     Active Substance: ACYCLOVIR
  4. ALLOPURINOL. [Concomitant]
     Active Substance: ALLOPURINOL
  5. R-CHOP [Concomitant]
     Active Substance: CYCLOPHOSPHAMIDE\DOXORUBICIN\PREDNISONE\RITUXIMAB\VINCRISTINE
  6. ALBUTEROL. [Concomitant]
     Active Substance: ALBUTEROL
  7. LEVOTHYROXINE. [Concomitant]
     Active Substance: LEVOTHYROXINE
  8. OMEPRAZOLE. [Concomitant]
     Active Substance: OMEPRAZOLE
  9. LEXAPRO [Concomitant]
     Active Substance: ESCITALOPRAM OXALATE
  10. FINGOLIMOD 0.5MG DAILY [Suspect]
     Active Substance: FINGOLIMOD
     Indication: MULTIPLE SCLEROSIS
     Route: 048
     Dates: start: 201201, end: 201801

REACTIONS (5)
  - Weight decreased [None]
  - B-cell lymphoma [None]
  - Therapy cessation [None]
  - Abdominal discomfort [None]
  - Gastrointestinal disorder [None]

NARRATIVE: CASE EVENT DATE: 20180120
